FAERS Safety Report 17809367 (Version 1)
Quarter: 2020Q2

REPORT INFORMATION
  Report Type: Spontaneous
  Country: DE (occurrence: DE)
  Receive Date: 20200521
  Receipt Date: 20200521
  Transmission Date: 20200714
  Serious: Yes (Other)
  Sender: FDA-Public Use
  Company Number: DE-ABBVIE-20K-062-3408964-00

PATIENT
  Age: 41 Year
  Sex: Male

DRUGS (1)
  1. MAVIRET [Suspect]
     Active Substance: GLECAPREVIR\PIBRENTASVIR
     Indication: HEPATITIS C
     Route: 048
     Dates: start: 201712

REACTIONS (12)
  - Condition aggravated [Unknown]
  - Asthenia [Unknown]
  - Pain [Unknown]
  - Depression [Unknown]
  - Rheumatic disorder [Unknown]
  - Lichen planus [Unknown]
  - Influenza like illness [Unknown]
  - Feeling abnormal [Unknown]
  - Penile burning sensation [Unknown]
  - Gait inability [Unknown]
  - Malaise [Unknown]
  - Rash [Unknown]

NARRATIVE: CASE EVENT DATE: 2017
